FAERS Safety Report 16857473 (Version 1)
Quarter: 2019Q3

REPORT INFORMATION
  Report Type: Spontaneous
  Country: CN (occurrence: CN)
  Receive Date: 20190926
  Receipt Date: 20190926
  Transmission Date: 20191005
  Serious: Yes (Other)
  Sender: FDA-Public Use
  Company Number: CN-PFIZER INC-2019410808

PATIENT
  Age: 62 Year
  Sex: Female

DRUGS (1)
  1. LIPITOR [Suspect]
     Active Substance: ATORVASTATIN CALCIUM
     Indication: HYPERLIPIDAEMIA
     Dosage: 1 DF, 1X/DAY
     Route: 048
     Dates: start: 20190902, end: 20190902

REACTIONS (4)
  - Chest pain [Recovering/Resolving]
  - Discomfort [Recovering/Resolving]
  - Chest discomfort [Recovering/Resolving]
  - Myocardial necrosis marker increased [Recovering/Resolving]

NARRATIVE: CASE EVENT DATE: 20190902
